FAERS Safety Report 4450134-0 (Version None)
Quarter: 2004Q3

REPORT INFORMATION
  Report Type: 
  Country: None (occurrence: None)
  Receive Date: 20040910
  Receipt Date: 20040826
  Transmission Date: 20050211
  Serious: Yes (Death, Life-Threatening)
  Sender: FDA-Public Use
  Company Number: 237245

PATIENT
  Age: 17 Year
  Sex: Male

DRUGS (13)
  1. NOVOSEVEN [Suspect]
     Indication: POST PROCEDURAL HAEMORRHAGE
     Dates: start: 20040422, end: 20040422
  2. NOVOSEVEN [Suspect]
     Indication: POST PROCEDURAL HAEMORRHAGE
     Dates: start: 20040501
  3. BUMETANIDE [Concomitant]
  4. TAZOCILLIEN (TAZOBACTAM SODIUM/ PIPERACILLIN SODIUM) [Concomitant]
  5. FLUCONAZOLE [Concomitant]
  6. MABTHERA (RITUXIMAB) [Concomitant]
  7. SLU-MEDROL (METHYLPREDNISOLONE SODIUM SUCCINATE) [Concomitant]
  8. OMEPRAZOLE [Concomitant]
  9. ROCEPHIN [Concomitant]
  10. LASIX [Concomitant]
  11. TARGOCID [Concomitant]
  12. THIOPENTAL SODIUM [Concomitant]
  13. RIVOTRIL (CLONAZEPAM) [Concomitant]

REACTIONS (14)
  - COMA [None]
  - CONVULSION [None]
  - ENCEPHALOPATHY [None]
  - GENERAL PHYSICAL HEALTH DETERIORATION [None]
  - HAEMODIALYSIS [None]
  - HAEMODYNAMIC INSTABILITY [None]
  - HYPERAMMONAEMIA [None]
  - LACTIC ACIDOSIS [None]
  - LARGE INTESTINE PERFORATION [None]
  - LEUKOPENIA [None]
  - MYDRIASIS [None]
  - PERITONITIS [None]
  - PUPILLARY REFLEX IMPAIRED [None]
  - THROMBOCYTOPENIA [None]
